FAERS Safety Report 18897847 (Version 2)
Quarter: 2021Q2

REPORT INFORMATION
  Report Type: Spontaneous
  Country: BE (occurrence: BE)
  Receive Date: 20210216
  Receipt Date: 20210501
  Transmission Date: 20210717
  Serious: Yes (Other)
  Sender: FDA-Public Use
  Company Number: BE-TEVA-2021-BE-1880764

PATIENT
  Age: 68 Year
  Sex: Female

DRUGS (5)
  1. GLUCOMED [Concomitant]
     Indication: ARTHRALGIA
     Dosage: 1 DOSAGE FORMS DAILY; STARTED BEFORE ?APR?2018
     Route: 048
  2. LYRICA [Concomitant]
     Active Substance: PREGABALIN
     Indication: FEAR
  3. LYRICA [Concomitant]
     Active Substance: PREGABALIN
     Indication: MIGRAINE
     Dosage: 75 MILLIGRAM DAILY;
     Route: 048
     Dates: start: 20200618, end: 20210404
  4. AJOVY [Suspect]
     Active Substance: FREMANEZUMAB-VFRM
     Indication: MIGRAINE
     Dosage: 225 MG/1.5 ML; THE SECOND INJECTION WAS PLANNED ON 10?FEB?2021.
     Route: 065
     Dates: start: 20210113
  5. DESLORATADINE 5MG [Concomitant]
     Active Substance: DESLORATADINE
     Indication: HYPERSENSITIVITY
     Dosage: 5 MILLIGRAM DAILY;
     Route: 048
     Dates: start: 202007

REACTIONS (4)
  - Carcinoembryonic antigen increased [Unknown]
  - Diverticulum intestinal [Unknown]
  - Tumour marker increased [Unknown]
  - Benign breast neoplasm [Unknown]

NARRATIVE: CASE EVENT DATE: 20210203
